FAERS Safety Report 5206005-5 (Version None)
Quarter: 2007Q1

REPORT INFORMATION
  Report Type: 
  Country: None (occurrence: None)
  Receive Date: 20070111
  Receipt Date: 20070102
  Transmission Date: 20070707
  Serious: Yes (Hospitalization)
  Sender: FDA-Public Use
  Company Number: US-ROCHE-475955

PATIENT
  Sex: Male

DRUGS (1)
  1. ZENAPAX [Suspect]
     Indication: TRANSPLANT REJECTION
     Route: 065

REACTIONS (2)
  - LYMPHOCYTE COUNT ABNORMAL [None]
  - MUSCULAR WEAKNESS [None]
